FAERS Safety Report 17172243 (Version 2)
Quarter: 2024Q4

REPORT INFORMATION
  Report Type: Spontaneous
  Country: FR (occurrence: FR)
  Receive Date: 20191218
  Receipt Date: 20241129
  Transmission Date: 20250115
  Serious: Yes (Other)
  Sender: GALDERMA
  Company Number: None

PATIENT

DRUGS (16)
  1. LYMECYCLINE [Suspect]
     Active Substance: LYMECYCLINE
     Indication: Acne
     Dosage: UNK
     Route: 048
     Dates: start: 20120307, end: 20120423
  2. EPIDUO [Suspect]
     Active Substance: ADAPALENE\BENZOYL PEROXIDE
     Indication: Acne
     Dosage: 1 DOSAGE FORM,
     Route: 061
     Dates: start: 20091019
  3. EPIDUO [Suspect]
     Active Substance: ADAPALENE\BENZOYL PEROXIDE
     Dosage: 1 DOSAGE FORM
     Route: 061
     Dates: start: 20110302
  4. ISOTRETINOIN [Concomitant]
     Active Substance: ISOTRETINOIN
     Indication: Acne
     Dosage: 15 MILLIGRAM, QD
     Route: 048
     Dates: start: 20160101, end: 20160101
  5. MINOLIS [Concomitant]
     Indication: Acne
     Dosage: UNK
     Route: 065
     Dates: start: 20110302
  6. MINOLIS [Concomitant]
     Dosage: UNK
     Route: 065
     Dates: start: 20110907, end: 20111207
  7. ISOTRETINOIN [Concomitant]
     Active Substance: ISOTRETINOIN
     Indication: Acne
     Dosage: 40 MILLIGRAM, QD
     Route: 048
     Dates: start: 20050921, end: 20051121
  8. ISOTRETINOIN [Concomitant]
     Active Substance: ISOTRETINOIN
     Dosage: 20 MILLIGRAM, QD
     Route: 048
     Dates: start: 20060222, end: 200607
  9. ISOTRETINOIN [Concomitant]
     Active Substance: ISOTRETINOIN
     Dosage: 20 MILLIGRAM, QD
     Route: 048
     Dates: start: 20061127, end: 20090310
  10. ZINC GLUCONATE [Concomitant]
     Active Substance: ZINC GLUCONATE
     Indication: Acne
     Dosage: 1 DOSAGE FORM, QD
     Route: 065
     Dates: start: 20130605
  11. ZINC GLUCONATE [Concomitant]
     Active Substance: ZINC GLUCONATE
     Dosage: 1 DOSAGE FORM, QD
     Route: 065
     Dates: start: 20130920
  12. ZINC GLUCONATE [Concomitant]
     Active Substance: ZINC GLUCONATE
     Dosage: 1 DOSAGE FORM, QD
     Route: 065
     Dates: start: 20140422
  13. ZINC GLUCONATE [Concomitant]
     Active Substance: ZINC GLUCONATE
     Dosage: UNK UNK, QID
     Route: 065
     Dates: start: 20150424
  14. DOXYCYCLINE [Concomitant]
     Active Substance: DOXYCYCLINE
     Indication: Acne
     Dosage: ,
     Route: 065
     Dates: start: 20150402, end: 20150702
  15. ERYTHROMYCIN [Concomitant]
     Active Substance: ERYTHROMYCIN
     Indication: Acne
     Dosage: 2 DOSAGE FORM
     Route: 061
     Dates: start: 20130605
  16. DOXYCYCLINE [Concomitant]
     Active Substance: DOXYCYCLINE
     Indication: Acne
     Dosage: 1 DOSAGE FORM, QID
     Route: 048
     Dates: start: 20130415, end: 20130715

REACTIONS (11)
  - Tinnitus [Not Recovered/Not Resolved]
  - Muscle rupture [Recovered/Resolved]
  - Photophobia [Not Recovered/Not Resolved]
  - Depression [Not Recovered/Not Resolved]
  - Middle insomnia [Not Recovered/Not Resolved]
  - Head discomfort [Not Recovered/Not Resolved]
  - Arthralgia [Not Recovered/Not Resolved]
  - Myalgia [Not Recovered/Not Resolved]
  - Ligament rupture [Recovered/Resolved]
  - Night sweats [Not Recovered/Not Resolved]
  - Haematoma [Not Recovered/Not Resolved]
